FAERS Safety Report 5092176-0 (Version None)
Quarter: 2006Q3

REPORT INFORMATION
  Report Type: 
  Country: None (occurrence: None)
  Receive Date: 20060825
  Receipt Date: 20060810
  Transmission Date: 20061208
  Serious: Yes (Hospitalization)
  Sender: FDA-Public Use
  Company Number: 2006S1007509

PATIENT
  Age: 43 Year
  Sex: Male
  Weight: 95.2554 kg

DRUGS (8)
  1. FENTANYL TRANSDERMAL SYSTEM [Suspect]
     Indication: COLON CANCER
     Dosage: 25 UG/H R; Q3D; TDER
     Route: 062
     Dates: start: 20060804, end: 20060807
  2. LISINOPRIL [Suspect]
     Indication: HYPERTENSION
     Dosage: 10 MG; QD; PO
     Route: 048
     Dates: start: 20060727
  3. METOPROLOL (CON.) [Concomitant]
  4. ACETYLSALICYIC ACID (CON.) [Concomitant]
  5. CLOPIDOGREL (CON.) [Concomitant]
  6. ATORVASTATIN CALCIUM (CON.) [Concomitant]
  7. OMEPRAZOLE (CON.) [Concomitant]
  8. GLYCERYL TRINITRATE (CON.) [Concomitant]

REACTIONS (4)
  - CONFUSIONAL STATE [None]
  - DIZZINESS [None]
  - DYSARTHRIA [None]
  - HYPOTENSION [None]
